FAERS Safety Report 9173754 (Version 1)
Quarter: 2013Q1

REPORT INFORMATION
  Report Type: Spontaneous
  Country: GB (occurrence: GB)
  Receive Date: 20130320
  Receipt Date: 20130320
  Transmission Date: 20140127
  Serious: Yes (Hospitalization, Other)
  Sender: FDA-Public Use
  Company Number: GB-JNJFOC-2002110089GB

PATIENT
  Age: 19 Year
  Sex: Female

DRUGS (4)
  1. MOTRIN [Suspect]
     Indication: BACK PAIN
     Dosage: FREQUENCY TEXT: TID DAILY DOSE TEXT: 400 MILLIGRAM, TID DAILY DOSE QTY: 1200 MG
     Route: 048
  2. FOLIC ACID [Concomitant]
     Indication: COELIAC DISEASE
     Dosage: FREQUENCY TEXT: QD DAILY DOSE TEXT: 5 MILLIGRAM, QD DAILY DOSE QTY: 5 MG
     Route: 048
  3. BECLOMETASONE [Concomitant]
     Indication: ASTHMA
     Dosage: DAILY DOSE TEXT: 100 UG, UNK
     Route: 055
  4. SALBUTAMOL [Concomitant]
     Indication: ASTHMA
     Dosage: DAILY DOSE TEXT: 100 UG, UNK
     Route: 055

REACTIONS (1)
  - Lower respiratory tract infection [Recovered/Resolved]
